FAERS Safety Report 8565636-5 (Version None)
Quarter: 2012Q3

REPORT INFORMATION
  Report Type: 
  Country: None (occurrence: None)
  Receive Date: 20120803
  Receipt Date: 20120727
  Transmission Date: 20120928
  Serious: Yes (Death)
  Sender: FDA-Public Use
  Company Number: CH-CUBIST-2012S1000643

PATIENT
  Age: 61 Year
  Sex: Male

DRUGS (5)
  1. CUBICIN [Suspect]
     Indication: BACTERAEMIA
  2. CUBICIN [Suspect]
     Indication: HAEMODIALYSIS
  3. CUBICIN [Suspect]
     Indication: RENAL FAILURE
  4. MEROPENEM [Concomitant]
     Indication: PRODUCT USED FOR UNKNOWN INDICATION
     Dosage: DOSE UNIT:U
  5. CUBICIN [Suspect]
     Indication: HEPATIC FAILURE

REACTIONS (2)
  - MULTI-ORGAN FAILURE [None]
  - INFECTION [None]
